FAERS Safety Report 4786533-7 (Version None)
Quarter: 2005Q3

REPORT INFORMATION
  Report Type: 
  Country: None (occurrence: None)
  Receive Date: 20050927
  Receipt Date: 20050706
  Transmission Date: 20060218
  Serious: No
  Sender: FDA-Public Use
  Company Number: USA0507102126

PATIENT
  Age: 36 Year
  Sex: Female

DRUGS (5)
  1. STRATTERA [Suspect]
     Indication: ATTENTION DEFICIT/HYPERACTIVITY DISORDER
     Dosage: 80 MG DAY
  2. PAXIL [Concomitant]
  3. DILANTIN [Concomitant]
  4. MULTI-VITAMIN [Concomitant]
  5. ECOTRIN (ACETYLSALICYLIC ACID) [Concomitant]

REACTIONS (1)
  - PARAESTHESIA [None]
